FAERS Safety Report 24232670 (Version 1)
Quarter: 2024Q3

REPORT INFORMATION
  Report Type: Spontaneous
  Country: US (occurrence: None)
  Receive Date: 20240820
  Receipt Date: 20240820
  Transmission Date: 20241017
  Serious: Yes (Hospitalization)
  Sender: Public
  Company Number: None

PATIENT
  Age: 84 Year
  Sex: Female
  Weight: 29.38 kg

DRUGS (1)
  1. DAPTOMYCIN [Suspect]
     Active Substance: DAPTOMYCIN
     Indication: Device related infection
     Dosage: FREQUENCY : DAILY;?
     Route: 042
     Dates: start: 20240616, end: 20240704

REACTIONS (1)
  - Haematoma [None]

NARRATIVE: CASE EVENT DATE: 20240701
